FAERS Safety Report 20375854 (Version 1)
Quarter: 2022Q1

REPORT INFORMATION
  Report Type: Other
  Country: US (occurrence: None)
  Receive Date: 20220125
  Receipt Date: 20220125
  Transmission Date: 20220424
  Serious: No
  Sender: FDA-Public Use
  Company Number: US-ROCHE-3006373

PATIENT
  Age: 46 Year
  Sex: Female
  Weight: 109.87 kg

DRUGS (2)
  1. OCREVUS [Suspect]
     Active Substance: OCRELIZUMAB
     Indication: Relapsing multiple sclerosis
     Dosage: TREATMENT IS RECEIVED EVERY 5 TO 6 MONTHS
     Route: 065
     Dates: start: 20190306
  2. OCREVUS [Suspect]
     Active Substance: OCRELIZUMAB
     Indication: Optic neuritis

REACTIONS (1)
  - COVID-19 [Not Recovered/Not Resolved]

NARRATIVE: CASE EVENT DATE: 20211228
